FAERS Safety Report 24186450 (Version 2)
Quarter: 2024Q3

REPORT INFORMATION
  Report Type: Spontaneous
  Country: NZ (occurrence: NZ)
  Receive Date: 20240808
  Receipt Date: 20240825
  Transmission Date: 20241017
  Serious: Yes (Death)
  Sender: JOHNSON AND JOHNSON
  Company Number: NZ-JNJFOC-20240813804

PATIENT
  Sex: Male

DRUGS (1)
  1. ZAVESCA [Suspect]
     Active Substance: MIGLUSTAT
     Indication: Product used for unknown indication
     Route: 048

REACTIONS (1)
  - Death [Fatal]
